APPROVED DRUG PRODUCT: THEOPHYLLINE IN DEXTROSE 5% IN PLASTIC CONTAINER
Active Ingredient: THEOPHYLLINE
Strength: 400MG/100ML
Dosage Form/Route: INJECTABLE;INJECTION
Application: N019211 | Product #005
Applicant: HOSPIRA INC
Approved: Dec 14, 1984 | RLD: No | RS: No | Type: DISCN